FAERS Safety Report 15060677 (Version 1)
Quarter: 2018Q2

REPORT INFORMATION
  Report Type: Spontaneous
  Country: DE (occurrence: DE)
  Receive Date: 20180625
  Receipt Date: 20180625
  Transmission Date: 20180711
  Serious: Yes (Other)
  Sender: FDA-Public Use
  Company Number: DE-PFIZER INC-2018251627

PATIENT
  Sex: Female
  Weight: 1.93 kg

DRUGS (4)
  1. VENLAFAXINE HCL [Suspect]
     Active Substance: VENLAFAXINE HYDROCHLORIDE
     Dosage: 175 MG, 1X/DAY (0 - 37.2 GESTATIONAL WEEK)
     Route: 064
     Dates: start: 20170126, end: 20171014
  2. PANTOPRAZOLE [Concomitant]
     Active Substance: PANTOPRAZOLE
     Indication: GASTRITIS
     Dosage: 20 MG, 1X/DAY (0 - 37.2 GESTATIONAL WEEK)
     Route: 064
  3. TRAZODONE [Suspect]
     Active Substance: TRAZODONE HYDROCHLORIDE
     Indication: DEPRESSION
     Dosage: 150 - 175 MG, ONCE A DAY (0 - 37.2 GESTATIONAL WEEK)
     Route: 064
     Dates: start: 20170126, end: 20171014
  4. FOLIO FORTE [Concomitant]
     Active Substance: FOLIC ACID\VITAMINS
     Indication: PROPHYLAXIS OF NEURAL TUBE DEFECT
     Dosage: 0.8 MG, 1X/DAY (7 - 13 GESTATIONAL WEEKS)
     Route: 064

REACTIONS (8)
  - Neonatal hypoxia [Recovered/Resolved]
  - Somnolence [Unknown]
  - Polycythaemia [Recovered/Resolved]
  - Small for dates baby [Recovering/Resolving]
  - Temperature regulation disorder [Unknown]
  - Maternal exposure during pregnancy [Unknown]
  - Hyperbilirubinaemia neonatal [Recovered/Resolved]
  - Respiratory disorder neonatal [Unknown]

NARRATIVE: CASE EVENT DATE: 20170126
